FAERS Safety Report 4706130-9 (Version None)
Quarter: 2005Q2

REPORT INFORMATION
  Report Type: 
  Country: None (occurrence: None)
  Receive Date: 20050629
  Receipt Date: 20050617
  Transmission Date: 20051028
  Serious: Yes (Hospitalization)
  Sender: FDA-Public Use
  Company Number: 2005BI008401

PATIENT
  Sex: Female

DRUGS (1)
  1. AVONEX [Suspect]
     Indication: MULTIPLE SCLEROSIS
     Dosage: 30 UG;QW; IM
     Route: 030

REACTIONS (5)
  - BLADDER DISORDER [None]
  - DISLOCATION OF VERTEBRA [None]
  - DURAL TEAR [None]
  - PERONEAL NERVE PALSY [None]
  - PROCEDURAL COMPLICATION [None]
